FAERS Safety Report 5053857-8 (Version None)
Quarter: 2006Q3

REPORT INFORMATION
  Report Type: 
  Country: None (occurrence: None)
  Receive Date: 20060718
  Receipt Date: 20060717
  Transmission Date: 20061208
  Serious: Yes (Hospitalization)
  Sender: FDA-Public Use
  Company Number: DE-GLAXOSMITHKLINE-D0050346A

PATIENT

DRUGS (1)
  1. ARIXTRA [Suspect]
     Indication: KNEE OPERATION
     Dosage: 2.5MG UNKNOWN
     Route: 058
     Dates: start: 20040101, end: 20060101

REACTIONS (2)
  - HAEMORRHAGE [None]
  - MEDICATION ERROR [None]
